FAERS Safety Report 5174295-3 (Version None)
Quarter: 2006Q4

REPORT INFORMATION
  Report Type: 
  Country: None (occurrence: None)
  Receive Date: 20061214
  Receipt Date: 20061207
  Transmission Date: 20070319
  Serious: Yes (Other)
  Sender: FDA-Public Use
  Company Number: US-KINGPHARMUSA00001-K200601560

PATIENT
  Age: 78 Year
  Sex: Female

DRUGS (2)
  1. ALTACE [Suspect]
  2. COREG [Suspect]

REACTIONS (7)
  - BLOOD CHOLESTEROL [None]
  - BLOOD CHOLESTEROL ABNORMAL [None]
  - CEREBROVASCULAR ACCIDENT [None]
  - DEMENTIA ALZHEIMER'S TYPE [None]
  - DIABETES MELLITUS [None]
  - HYPERTENSION [None]
  - VISUAL DISTURBANCE [None]
